FAERS Safety Report 23990094 (Version 1)
Quarter: 2024Q2

REPORT INFORMATION
  Report Type: Spontaneous
  Country: US (occurrence: US)
  Receive Date: 20240619
  Receipt Date: 20240619
  Transmission Date: 20240715
  Serious: No
  Sender: FDA-Public Use
  Company Number: US-SANOFI-02089998

PATIENT
  Sex: Male

DRUGS (3)
  1. LANTUS SOLOSTAR [Suspect]
     Active Substance: INSULIN GLARGINE
     Indication: Type 2 diabetes mellitus
     Dosage: 28 IU, QD
     Dates: end: 20240611
  2. OZEMPIC [Concomitant]
     Active Substance: SEMAGLUTIDE
  3. HUMALOG [Concomitant]
     Active Substance: INSULIN LISPRO
     Dosage: 13 UNITS IN THE MORNING, 14 AT LUNCH AND 15 UNITS AT NIGHT, TID

REACTIONS (1)
  - Blood glucose increased [Unknown]
